FAERS Safety Report 5909686-3 (Version None)
Quarter: 2008Q4

REPORT INFORMATION
  Report Type: 
  Country: None (occurrence: None)
  Receive Date: 20081007
  Receipt Date: 20080929
  Transmission Date: 20090506
  Serious: Yes (Other)
  Sender: FDA-Public Use
  Company Number: GB-RANBAXY-2008RR-18392

PATIENT
  Age: 45 Year
  Sex: Male

DRUGS (6)
  1. AMLODIPINE [Suspect]
     Route: 065
  2. ASPIRIN [Suspect]
     Route: 065
  3. AVANDAMET [Suspect]
  4. METOPROLOL 50 MG COMPRIMATE [Suspect]
     Route: 065
  5. COMPECTACT [Concomitant]
  6. SIMVASTATIN [Concomitant]
     Indication: BLOOD CHOLESTEROL INCREASED

REACTIONS (2)
  - DIABETES MELLITUS INADEQUATE CONTROL [None]
  - DRUG INEFFECTIVE [None]
